FAERS Safety Report 9434812 (Version 1)
Quarter: 2013Q3

REPORT INFORMATION
  Report Type: Spontaneous
  Country: US (occurrence: None)
  Receive Date: 20130731
  Receipt Date: 20130731
  Transmission Date: 20140515
  Serious: No
  Sender: FDA-Public Use
  Company Number: None

PATIENT
  Age: 55 Year
  Sex: Female
  Weight: 64.1 kg

DRUGS (8)
  1. PREDNISONE [Suspect]
     Indication: RENAL TRANSPLANT
     Route: 048
     Dates: start: 201101
  2. TACROLIMUS [Suspect]
     Indication: RENAL TRANSPLANT
     Dosage: 0.5 MG QAM 1 MG QPM
     Route: 048
     Dates: start: 201101
  3. ROSUVASTATIN [Concomitant]
  4. AMLODIPINE [Concomitant]
  5. CLOPIDOGREL [Concomitant]
  6. FLUCONAZOLE [Concomitant]
  7. GEMFIBROZIL [Concomitant]
  8. MAGNESIUM OXIDE [Concomitant]

REACTIONS (2)
  - Diabetes mellitus [None]
  - Drug level changed [None]
